FAERS Safety Report 5118610-5 (Version None)
Quarter: 2006Q4

REPORT INFORMATION
  Report Type: 
  Country: None (occurrence: None)
  Receive Date: 20061002
  Receipt Date: 20060928
  Transmission Date: 20070319
  Serious: Yes (Other)
  Sender: FDA-Public Use
  Company Number: US-GLAXOSMITHKLINE-A0621820A

PATIENT
  Age: 34 Year
  Sex: Female

DRUGS (2)
  1. LAMICTAL [Suspect]
     Indication: BIPOLAR DISORDER
     Route: 048
  2. NO CONCURRENT MEDICATION [Concomitant]

REACTIONS (4)
  - LYMPHADENOPATHY [None]
  - PHARYNGOLARYNGEAL PAIN [None]
  - VERTIGO [None]
  - WHITE BLOOD CELL COUNT DECREASED [None]
